FAERS Safety Report 5870440-2 (Version None)
Quarter: 2008Q3

REPORT INFORMATION
  Report Type: 
  Country: None (occurrence: None)
  Receive Date: 20080904
  Receipt Date: 20080620
  Transmission Date: 20090109
  Serious: Yes (Other)
  Sender: FDA-Public Use
  Company Number: US-BRISTOL-MYERS SQUIBB COMPANY-14236566

PATIENT
  Age: 50 Year
  Sex: Female

DRUGS (1)
  1. DEFINITY [Suspect]

REACTIONS (2)
  - PRURITUS [None]
  - URTICARIA [None]
